FAERS Safety Report 19211909 (Version 1)
Quarter: 2021Q2

REPORT INFORMATION
  Report Type: Spontaneous
  Country: US (occurrence: US)
  Receive Date: 20210503
  Receipt Date: 20210503
  Transmission Date: 20210717
  Serious: Yes (Hospitalization, Other)
  Sender: FDA-Public Use
  Company Number: None

PATIENT

DRUGS (1)
  1. CEPHALEXIN 500MG CAPSULE [Suspect]
     Active Substance: CEPHALEXIN
     Indication: CELLULITIS
     Dosage: ?          QUANTITY:1 PILL;?
     Route: 048
     Dates: start: 20210109, end: 20210115

REACTIONS (3)
  - Peroneal nerve palsy [None]
  - Neuropathy peripheral [None]
  - Hypoaesthesia [None]

NARRATIVE: CASE EVENT DATE: 20210112
